FAERS Safety Report 24378336 (Version 2)
Quarter: 2024Q4

REPORT INFORMATION
  Report Type: Spontaneous
  Country: FR (occurrence: FR)
  Receive Date: 20240930
  Receipt Date: 20241004
  Transmission Date: 20250115
  Serious: Yes (Hospitalization)
  Sender: AMERICAN REGENT
  Company Number: FR-AMERICAN REGENT INC-2024003593

PATIENT
  Age: 65 Year
  Sex: Male
  Weight: 65.5 kg

DRUGS (8)
  1. FERINJECT [Suspect]
     Active Substance: FERRIC CARBOXYMALTOSE
     Indication: Thrombosis prophylaxis
     Dosage: 1000 MILLIGRAM; LAST DOSE ADMINISTERED PRIOR TO EVENTS ON 31MAR2023
     Route: 042
     Dates: start: 20230331, end: 20230331
  2. ALDACTONE [Suspect]
     Active Substance: SPIRONOLACTONE
     Indication: Cardiac failure
     Dosage: 25 MG,1 IN 1 D (FILM-COATED, SCORED, TABLET)
     Route: 048
     Dates: start: 20230331, end: 20230403
  3. LOVENOX [Suspect]
     Active Substance: ENOXAPARIN SODIUM
     Indication: Thrombosis prophylaxis
     Dosage: 4000 IU (4000 IU,1 IN 1 D)
     Route: 058
     Dates: start: 20230330, end: 20230402
  4. FUROSEMIDE [Concomitant]
     Active Substance: FUROSEMIDE
     Indication: Cardiac failure
     Dosage: 40 MILLIGRAM (SCORED TABLET)
     Route: 065
     Dates: start: 202303
  5. BISOPROLOL FUMARATE [Concomitant]
     Active Substance: BISOPROLOL FUMARATE
     Indication: Cardiac failure
     Dosage: 1.5 MG (1.5 MG,1 IN 1 D)
     Route: 065
     Dates: start: 20230331
  6. POTASSIUM CHLORIDE [Concomitant]
     Active Substance: POTASSIUM CHLORIDE
     Indication: Product used for unknown indication
     Dosage: UNK
     Route: 065
  7. KAYEXALATE [Concomitant]
     Active Substance: SODIUM POLYSTYRENE SULFONATE
     Indication: Hyperkalaemia
     Dosage: 15 GRAM
     Route: 048
  8. DAPAGLIFLOZIN [Concomitant]
     Active Substance: DAPAGLIFLOZIN
     Indication: Type 2 diabetes mellitus
     Dosage: 10 MG (10 MG,1 IN 1 D)
     Route: 048
     Dates: start: 20230403

REACTIONS (3)
  - Thrombocytopenia [Recovered/Resolved]
  - Hepatic cytolysis [Recovered/Resolved]
  - Off label use [Unknown]

NARRATIVE: CASE EVENT DATE: 20230331
